FAERS Safety Report 9693937 (Version 1)
Quarter: 2013Q4

REPORT INFORMATION
  Report Type: Spontaneous
  Country: JP (occurrence: JP)
  Receive Date: 20131118
  Receipt Date: 20131118
  Transmission Date: 20140711
  Serious: Yes (Death, Hospitalization)
  Sender: FDA-Public Use
  Company Number: PHHY2013JP130085

PATIENT
  Age: 27 Year
  Sex: Female

DRUGS (2)
  1. PACLITAXEL [Suspect]
     Indication: BREAST CANCER STAGE IV
     Dosage: 90 MG/M2, ON DAYS 1, 8, AND 15
  2. BEVACIZUMAB [Suspect]
     Indication: BREAST CANCER STAGE IV
     Dosage: 10 MG/M2, ON DAYS 1 AND 15

REACTIONS (9)
  - Respiratory failure [Fatal]
  - Lymphangiosis carcinomatosa [Fatal]
  - Cardio-respiratory arrest [Unknown]
  - Tumour necrosis [Unknown]
  - Skin erosion [Unknown]
  - Skin ulcer [Unknown]
  - Skin exfoliation [Unknown]
  - Pain [Unknown]
  - Tumour haemorrhage [Unknown]
